FAERS Safety Report 10979262 (Version 3)
Quarter: 2015Q2

REPORT INFORMATION
  Report Type: Spontaneous
  Country: US (occurrence: US)
  Receive Date: 20150402
  Receipt Date: 20150609
  Transmission Date: 20150821
  Serious: Yes (Hospitalization)
  Sender: FDA-Public Use
  Company Number: US-BAYER-2015-099032

PATIENT
  Age: 25 Year
  Sex: Female
  Weight: 99.77 kg

DRUGS (3)
  1. MIRENA [Suspect]
     Active Substance: LEVONORGESTREL
     Dosage: 20 MCG/24HR, CONT
     Route: 015
     Dates: start: 20130723, end: 20140604
  2. MOTRIN [Concomitant]
     Active Substance: IBUPROFEN
     Indication: PAIN
  3. SPRINTEC [Concomitant]
     Active Substance: ETHINYL ESTRADIOL\NORGESTIMATE

REACTIONS (8)
  - Menorrhagia [None]
  - Pain [None]
  - Uterine perforation [None]
  - Medical device discomfort [None]
  - Device dislocation [None]
  - Infection [None]
  - Injury [None]
  - Device issue [None]

NARRATIVE: CASE EVENT DATE: 201307
